FAERS Safety Report 6622265-8 (Version None)
Quarter: 2010Q1

REPORT INFORMATION
  Report Type: 
  Country: None (occurrence: None)
  Receive Date: 20100305
  Receipt Date: 20100222
  Transmission Date: 20100710
  Serious: Yes (Hospitalization)
  Sender: FDA-Public Use
  Company Number: US-2010-0420

PATIENT
  Age: 56 Year
  Sex: Female

DRUGS (23)
  1. NAVELBINE [Suspect]
     Indication: BREAST CANCER METASTATIC
     Dates: start: 20090630
  2. NERATINIB [Suspect]
     Indication: BREAST CANCER METASTATIC
     Dosage: 240 MG QD PO
     Route: 048
     Dates: start: 20090630
  3. OXYCODONE HCL [Concomitant]
  4. LOMOTIL. MFR: NOT SPECIFIED [Concomitant]
  5. AMBIEN [Concomitant]
  6. LORAZEPAM [Concomitant]
  7. KLONOPIN [Concomitant]
  8. KEFLEX [Concomitant]
  9. XYLOCAINE. MFR: NOT SPECIFIED [Concomitant]
  10. EMLA. MFR: NOT SPECIFIED [Concomitant]
  11. COUMADIN. MFR: NOT SPECIFIED [Concomitant]
  12. HYDROXYCHLOROQUINE SULFATE [Concomitant]
  13. NASONEX [Concomitant]
  14. LEXAPRO. MFR: NOT SPECIFIED [Concomitant]
  15. PROTONIX [Concomitant]
  16. MIRALAX [Concomitant]
  17. VITAMIN D [Concomitant]
  18. CALCIUM [Concomitant]
  19. MULTIVITAMIN AND MINERAL. MFR: NOT SPECIFIED [Concomitant]
  20. IBUPROFEN [Concomitant]
  21. ZYRTEC. MFR: NOT SPECIFIED [Concomitant]
  22. SPECTAZOLE [Concomitant]
  23. ALBUTEROL SULFATE AUTOHALER [Concomitant]

REACTIONS (5)
  - BRADYCARDIA [None]
  - DEHYDRATION [None]
  - DIARRHOEA [None]
  - HYPOKALAEMIA [None]
  - SYNCOPE [None]
